FAERS Safety Report 10047750 (Version 1)
Quarter: 2014Q1

REPORT INFORMATION
  Report Type: Spontaneous
  Country: NL (occurrence: None)
  Receive Date: 20140327
  Receipt Date: 20140327
  Transmission Date: 20141002
  Serious: Yes (Hospitalization)
  Sender: FDA-Public Use
  Company Number: AUR-APL-2014-03762

PATIENT
  Age: 45 Year
  Sex: Female

DRUGS (6)
  1. LISINOPRIL [Suspect]
     Indication: PRODUCT USED FOR UNKNOWN INDICATION
  2. CHLORTHALIDONE (CHLORTALIDONE) [Concomitant]
  3. METOPROLOL (METOPROLOL) [Concomitant]
  4. METHOTREXATE (METHOTREXATE) [Concomitant]
  5. OMEPRAZOLE (OMEPRAZOLE) [Concomitant]
  6. SIMVASTATNI (SIMVASTATIN) [Concomitant]

REACTIONS (2)
  - Swollen tongue [None]
  - No therapeutic response [None]
